FAERS Safety Report 18916901 (Version 1)
Quarter: 2021Q1

REPORT INFORMATION
  Report Type: Spontaneous
  Country: US (occurrence: US)
  Receive Date: 20210219
  Receipt Date: 20210219
  Transmission Date: 20210420
  Serious: Yes (Death, Other)
  Sender: FDA-Public Use
  Company Number: US-AMNEAL PHARMACEUTICALS-2021-AMRX-00527

PATIENT
  Sex: Female

DRUGS (1)
  1. HYDROXYCHLOROQUINE SULFATE. [Suspect]
     Active Substance: HYDROXYCHLOROQUINE SULFATE
     Indication: FABRY^S DISEASE
     Dosage: CUMULATIVE DOSE RANGE? 1095G TO 1971G
     Route: 065

REACTIONS (4)
  - Neuromyopathy [Fatal]
  - Toxicity to various agents [Unknown]
  - Myopathy [Recovering/Resolving]
  - Off label use [Unknown]
